FAERS Safety Report 5747282-1 (Version None)
Quarter: 2008Q2

REPORT INFORMATION
  Report Type: 
  Country: None (occurrence: None)
  Receive Date: 20080523
  Receipt Date: 20080516
  Transmission Date: 20081010
  Serious: Yes (Hospitalization)
  Sender: FDA-Public Use
  Company Number: GB-RANBAXY-2008RR-15249

PATIENT

DRUGS (5)
  1. SIMVASTATIN 10MG TABLETS [Suspect]
  2. FUSIDIC ACID [Suspect]
     Indication: STAPHYLOCOCCAL BACTERAEMIA
     Route: 048
  3. VANCOMYCIN [Concomitant]
  4. CEFUROXIME [Concomitant]
  5. METRONIDAZOLE HCL [Concomitant]

REACTIONS (2)
  - DRUG INTERACTION [None]
  - RHABDOMYOLYSIS [None]
